FAERS Safety Report 6342967-0 (Version None)
Quarter: 2009Q3

REPORT INFORMATION
  Report Type: 
  Country: None (occurrence: None)
  Receive Date: 20090908
  Receipt Date: 20090904
  Transmission Date: 20100115
  Serious: Yes (Hospitalization, Other)
  Sender: FDA-Public Use
  Company Number: TH-BRISTOL-MYERS SQUIBB COMPANY-14646160

PATIENT
  Age: 32 Year
  Sex: Female
  Weight: 45 kg

DRUGS (8)
  1. CETUXIMAB [Suspect]
     Indication: SQUAMOUS CELL CARCINOMA OF THE CERVIX
     Route: 042
     Dates: start: 20090223, end: 20090316
  2. CISPLATIN [Suspect]
     Indication: SQUAMOUS CELL CARCINOMA OF THE CERVIX
     Dosage: CYC 3:16MAR09
     Route: 042
     Dates: start: 20090223, end: 20090316
  3. RADIOTHERAPY [Suspect]
     Indication: SQUAMOUS CELL CARCINOMA OF THE CERVIX
     Dosage: RT DELAYED FOR ONE MONTH CYC 3:16MAR09
     Dates: start: 20080101
  4. BRACHYTHERAPY [Suspect]
     Dates: start: 20090319
  5. BUSCOPAN [Concomitant]
     Indication: PAIN
     Dosage: 1X3PC
     Route: 048
     Dates: start: 20090316, end: 20090320
  6. MST [Concomitant]
     Indication: PAIN
     Route: 048
     Dates: start: 20090316, end: 20090320
  7. ONDANSETRON [Concomitant]
     Indication: NAUSEA
     Dosage: 1X3 AC
     Route: 048
     Dates: start: 20090316, end: 20090320
  8. ONDANSETRON [Concomitant]
     Indication: VOMITING
     Dosage: 1X3 AC
     Route: 048
     Dates: start: 20090316, end: 20090320

REACTIONS (7)
  - COLITIS [None]
  - DERMATITIS ACNEIFORM [None]
  - DIARRHOEA [None]
  - NAUSEA [None]
  - PERITONITIS [None]
  - SMALL INTESTINAL OBSTRUCTION [None]
  - VOMITING [None]
